FAERS Safety Report 10973912 (Version 1)
Quarter: 2015Q2

REPORT INFORMATION
  Report Type: Spontaneous
  Country: GB (occurrence: GB)
  Receive Date: 20150401
  Receipt Date: 20150401
  Transmission Date: 20150821
  Serious: Yes (Hospitalization, Disabling)
  Sender: FDA-Public Use
  Company Number: GB-TEVA-550597ACC

PATIENT
  Age: 57 Year
  Sex: Female
  Weight: 87 kg

DRUGS (12)
  1. DEXAMETHASONE. [Concomitant]
     Active Substance: DEXAMETHASONE
  2. DOMPERIDONE [Concomitant]
     Active Substance: DOMPERIDONE
  3. ONDANSETRON [Concomitant]
     Active Substance: ONDANSETRON
  4. BENZYDAMINE [Concomitant]
     Active Substance: BENZYDAMINE
  5. OMEPRAZOLE. [Concomitant]
     Active Substance: OMEPRAZOLE
  6. PARACETAMOL [Concomitant]
     Active Substance: ACETAMINOPHEN
  7. CYCLOPHOSPHAMIDE. [Suspect]
     Active Substance: CYCLOPHOSPHAMIDE
     Indication: CHEMOTHERAPY
     Dosage: FOR 6 CYCLES
     Route: 042
     Dates: start: 20120613, end: 20121003
  8. APREPITANT. [Concomitant]
     Active Substance: APREPITANT
  9. EPIRUBICIN [Suspect]
     Active Substance: EPIRUBICIN
     Indication: CHEMOTHERAPY
     Dosage: FOR 6 CYCLES
     Route: 042
     Dates: start: 20120613, end: 20121003
  10. PEGFILGRASTIM [Concomitant]
     Active Substance: PEGFILGRASTIM
  11. 5-FLUOROURACIL [Suspect]
     Active Substance: FLUOROURACIL
     Indication: CHEMOTHERAPY
     Dosage: 900MG EVERY 3 WEEKS FOR 6 CYCLES
     Route: 042
     Dates: start: 20120613, end: 20121003
  12. TRAMADOL [Concomitant]
     Active Substance: TRAMADOL

REACTIONS (2)
  - Dyspnoea [Recovering/Resolving]
  - Pulmonary fibrosis [Recovered/Resolved with Sequelae]

NARRATIVE: CASE EVENT DATE: 20121023
